FAERS Safety Report 15661761 (Version 1)
Quarter: 2018Q4

REPORT INFORMATION
  Report Type: Report from Study
  Country: AU (occurrence: AU)
  Receive Date: 20181127
  Receipt Date: 20181127
  Transmission Date: 20190205
  Serious: Yes (Hospitalization)
  Sender: FDA-Public Use
  Company Number: AU-PFIZER INC-2018392910

PATIENT
  Age: 20 Year
  Sex: Female
  Weight: 48 kg

DRUGS (14)
  1. BACTRIM DS [Concomitant]
     Active Substance: SULFAMETHOXAZOLE\TRIMETHOPRIM
     Indication: ANTIFUNGAL PROPHYLAXIS
     Dosage: 800/160MG MON/WED/FRI
     Route: 048
     Dates: start: 20180815
  2. ZOLADEX [GOSERELIN] [Concomitant]
     Indication: INFERTILITY
     Dosage: 3.6 MG, CYCLIC
     Dates: start: 20180905
  3. ALLOPURINOL. [Concomitant]
     Active Substance: ALLOPURINOL
     Indication: TUMOUR LYSIS SYNDROME
     Dosage: 300 MG, 1X/DAY
     Route: 048
     Dates: start: 20180814
  4. NUROFEN [IBUPROFEN] [Concomitant]
     Indication: PHARYNGITIS
  5. RITUXIMAB. [Concomitant]
     Active Substance: RITUXIMAB
     Indication: B-CELL LYMPHOMA
     Dosage: 570 MG, UNK
     Route: 042
     Dates: start: 20180815
  6. PARACETAMOL [Concomitant]
     Active Substance: ACETAMINOPHEN
     Indication: PHARYNGITIS
  7. NUROFEN [IBUPROFEN] [Concomitant]
     Indication: PAIN
     Dosage: 400 MG, AS NECESSARY
     Route: 048
     Dates: start: 20180811, end: 20180916
  8. AVELUMAB [Suspect]
     Active Substance: AVELUMAB
     Indication: B-CELL LYMPHOMA
     Dosage: 500 MG, UNK
     Route: 042
     Dates: start: 20180815
  9. VINCRISTINE [Suspect]
     Active Substance: VINCRISTINE
     Indication: B-CELL LYMPHOMA
     Dosage: 2 MG, UNK
     Route: 042
     Dates: start: 20180912
  10. DOXORUBICIN HCL [Concomitant]
     Active Substance: DOXORUBICIN HYDROCHLORIDE
     Indication: B-CELL LYMPHOMA
     Dosage: 76 MG, UNK
     Route: 042
     Dates: start: 20180912
  11. CYCLOPHOSPHAMIDE. [Concomitant]
     Active Substance: CYCLOPHOSPHAMIDE
     Indication: B-CELL LYMPHOMA
     Dosage: 1135 MG, UNK
     Route: 042
     Dates: start: 20180912
  12. PREDNISOLONE. [Concomitant]
     Active Substance: PREDNISOLONE
     Indication: B-CELL LYMPHOMA
     Dosage: 100 MG, UNK
     Route: 048
     Dates: start: 20180912
  13. VALTREX [Concomitant]
     Active Substance: VALACYCLOVIR HYDROCHLORIDE
     Indication: PAPILLOMA VIRAL INFECTION
     Dosage: 500 MG, 1X/DAY
     Route: 048
     Dates: start: 20180814
  14. PARACETAMOL [Concomitant]
     Active Substance: ACETAMINOPHEN
     Indication: PAIN
     Dosage: 1 G, AS NECESSARY
     Route: 048
     Dates: start: 20180811

REACTIONS (1)
  - Pharyngitis [Recovered/Resolved]

NARRATIVE: CASE EVENT DATE: 20180916
